FAERS Safety Report 8085156-4 (Version None)
Quarter: 2012Q1

REPORT INFORMATION
  Report Type: 
  Country: None (occurrence: None)
  Receive Date: 20120128
  Receipt Date: 20110310
  Transmission Date: 20120608
  Serious: No
  Sender: FDA-Public Use
  Company Number: US-ABBOTT-11P-163-0711600-00

PATIENT
  Sex: Male
  Weight: 65.83 kg

DRUGS (3)
  1. HUMIRA [Suspect]
     Indication: CROHN'S DISEASE
     Dates: start: 20110218, end: 20110218
  2. HUMIRA [Suspect]
     Dosage: 40MG EOW - NEXT FRIDAY
     Dates: start: 20110304, end: 20110304
  3. PREDNISONE TAB [Concomitant]
     Indication: CROHN'S DISEASE

REACTIONS (8)
  - MUSCLE SPASMS [None]
  - MALAISE [None]
  - NASAL CONGESTION [None]
  - COUGH [None]
  - THROAT IRRITATION [None]
  - ASTHENIA [None]
  - FATIGUE [None]
  - PARANASAL SINUS HYPERSECRETION [None]
